FAERS Safety Report 15214300 (Version 3)
Quarter: 2018Q3

REPORT INFORMATION
  Report Type: Report from Study
  Country: US (occurrence: US)
  Receive Date: 20180730
  Receipt Date: 20180907
  Transmission Date: 20181010
  Serious: Yes (Other)
  Sender: FDA-Public Use
  Company Number: PHEH2018US031000

PATIENT
  Sex: Male
  Weight: 65.3 kg

DRUGS (2)
  1. GLEEVEC [Suspect]
     Active Substance: IMATINIB MESYLATE
     Indication: GASTROINTESTINAL STROMAL TUMOUR
     Dosage: 400 MG, QD
     Route: 048
     Dates: start: 20170215
  2. GLEEVEC [Suspect]
     Active Substance: IMATINIB MESYLATE
     Dosage: 400 MG, QD
     Route: 048
     Dates: start: 20180721

REACTIONS (23)
  - Blepharitis [Unknown]
  - Weight decreased [Unknown]
  - Platelet count decreased [Unknown]
  - Haemoglobin decreased [Unknown]
  - Abdominal pain [Unknown]
  - Rash [Unknown]
  - Pruritus [Unknown]
  - Metastases to peritoneum [Recovering/Resolving]
  - Metastases to liver [Unknown]
  - Psoriasis [Unknown]
  - Diarrhoea [Unknown]
  - Mean cell volume increased [Unknown]
  - Gastrointestinal stromal tumour [Unknown]
  - Ascites [Recovered/Resolved]
  - Hepatic lesion [Recovered/Resolved]
  - Convulsions local [Unknown]
  - Metastases to adrenals [Unknown]
  - Malignant neoplasm progression [Unknown]
  - Muscle spasms [Unknown]
  - Freezing phenomenon [Unknown]
  - Nodule [Recovering/Resolving]
  - Hiatus hernia [Unknown]
  - Dermatitis [Unknown]
